FAERS Safety Report 15151008 (Version 2)
Quarter: 2018Q3

REPORT INFORMATION
  Report Type: Spontaneous
  Country: US (occurrence: US)
  Receive Date: 20180716
  Receipt Date: 20180823
  Transmission Date: 20181010
  Serious: No
  Sender: FDA-Public Use
  Company Number: US-SA-2018SA185888

PATIENT
  Sex: Male

DRUGS (1)
  1. LEMTRADA [Suspect]
     Active Substance: ALEMTUZUMAB
     Indication: MULTIPLE SCLEROSIS
     Dosage: UNK
     Route: 041
     Dates: start: 201609, end: 201609

REACTIONS (5)
  - Asthenia [Unknown]
  - Cognitive disorder [Unknown]
  - Pyrexia [Unknown]
  - Speech disorder [Unknown]
  - Fatigue [Unknown]
